FAERS Safety Report 6735077-1 (Version None)
Quarter: 2010Q2

REPORT INFORMATION
  Report Type: 
  Country: None (occurrence: None)
  Receive Date: 20100521
  Receipt Date: 20100512
  Transmission Date: 20101027
  Serious: Yes (Hospitalization, Other)
  Sender: FDA-Public Use
  Company Number: DE-JNJFOC-20100503664

PATIENT
  Age: 68 Year
  Sex: Female

DRUGS (7)
  1. RISPERDAL [Suspect]
     Indication: DRUG USE FOR UNKNOWN INDICATION
     Route: 048
     Dates: end: 20090507
  2. QUILONUM [Suspect]
     Indication: DRUG USE FOR UNKNOWN INDICATION
     Dosage: 675 MG - 0 - 450 MG
     Route: 048
     Dates: end: 20090508
  3. QUILONUM [Suspect]
     Route: 048
     Dates: end: 20090508
  4. AMITRIPTYLINE HCL [Suspect]
     Indication: DRUG USE FOR UNKNOWN INDICATION
     Route: 048
     Dates: start: 20070101, end: 20090508
  5. AMITRIPTYLINE HCL [Suspect]
     Route: 048
     Dates: start: 20070101, end: 20090508
  6. LEVOTHYROXINE SODIUM [Concomitant]
     Route: 048
  7. ASPIRIN [Concomitant]
     Route: 048

REACTIONS (3)
  - LUNG INFECTION [None]
  - PARKINSONISM [None]
  - PYREXIA [None]
